FAERS Safety Report 5616308-8 (Version None)
Quarter: 2008Q1

REPORT INFORMATION
  Report Type: 
  Country: None (occurrence: None)
  Receive Date: 20080204
  Receipt Date: 20080130
  Transmission Date: 20080703
  Serious: Yes (Hospitalization)
  Sender: FDA-Public Use
  Company Number: 2008SP002239

PATIENT
  Sex: Male
  Weight: 79.3795 kg

DRUGS (2)
  1. REBETOL [Suspect]
     Indication: HEPATITIS C
     Dosage: 1200 MG; PO
     Route: 048
     Dates: start: 20070501, end: 20070528
  2. PEGASYS [Suspect]
     Indication: HEPATITIS C
     Dates: start: 20070501, end: 20070528

REACTIONS (2)
  - GASTRITIS [None]
  - PANCREATITIS [None]
